FAERS Safety Report 22587265 (Version 6)
Quarter: 2023Q4

REPORT INFORMATION
  Report Type: Spontaneous
  Country: US (occurrence: US)
  Receive Date: 20230612
  Receipt Date: 20231130
  Transmission Date: 20240109
  Serious: Yes (Other)
  Sender: FDA-Public Use
  Company Number: US-UNITED THERAPEUTICS-UNT-2023-016429

PATIENT
  Age: 77 Year
  Sex: Female
  Weight: 62.404 kg

DRUGS (31)
  1. TYVASO DPI [Suspect]
     Active Substance: TREPROSTINIL
     Indication: Pulmonary arterial hypertension
     Dosage: 64 ?G, QID
  2. TYVASO DPI [Suspect]
     Active Substance: TREPROSTINIL
     Dosage: UNK
     Dates: start: 20220922
  3. TYVASO DPI [Suspect]
     Active Substance: TREPROSTINIL
     Indication: Pulmonary arterial hypertension
     Dosage: UNK
  4. TADALAFIL [Suspect]
     Active Substance: TADALAFIL
     Indication: Pulmonary arterial hypertension
     Dosage: 20 MG, QD
     Route: 048
     Dates: start: 20221122
  5. DELTASONE [Suspect]
     Active Substance: PREDNISONE
     Indication: Sarcoidosis
     Dosage: 40 MG, QD (TAKE TWO TABLETS BY MOUTH DAILY FOR 10 DAYS THEN 1 TABLET DAILY)
     Route: 048
     Dates: start: 20230312, end: 20230610
  6. DELTASONE [Suspect]
     Active Substance: PREDNISONE
     Dosage: 20 MG, QD
     Route: 048
     Dates: start: 20230508
  7. DELTASONE [Suspect]
     Active Substance: PREDNISONE
     Dosage: 20 MG, QD
     Route: 048
     Dates: start: 20230519
  8. DELTASONE [Suspect]
     Active Substance: PREDNISONE
     Dosage: 5 MG, QD
     Route: 048
     Dates: start: 20230529
  9. DELTASONE [Suspect]
     Active Substance: PREDNISONE
     Dosage: 5 MG, QOD
     Route: 048
     Dates: start: 20230605
  10. DELTASONE [Suspect]
     Active Substance: PREDNISONE
     Dosage: 2.5 MG, QOD
     Route: 048
     Dates: start: 20230612, end: 20230622
  11. OPSUMIT [Suspect]
     Active Substance: MACITENTAN
     Indication: Pulmonary hypertension
     Dosage: 10 MG, QD
     Route: 048
     Dates: start: 20230312, end: 20230612
  12. DEMADEX [Suspect]
     Active Substance: TORSEMIDE
     Indication: Oedema
     Dosage: 10 MG, QD
     Route: 048
     Dates: start: 20230123, end: 20230612
  13. DEMADEX [Suspect]
     Active Substance: TORSEMIDE
     Dosage: TAKE 20 MG ALTERNATING WITH 40 MG EVERY OTHER DAY FOR ONE MONTH
     Route: 048
     Dates: start: 20230612, end: 2023
  14. DEMADEX [Suspect]
     Active Substance: TORSEMIDE
     Dosage: 10 MG, QD (DECREASED DOSE)
     Route: 048
     Dates: start: 2023, end: 2023
  15. DEMADEX [Suspect]
     Active Substance: TORSEMIDE
     Dosage: TAKE 20 MG ALTERNATING WITH 40 MG EVERY OTHER DAY FOR ONE MONTH
     Route: 048
     Dates: start: 2023
  16. DEMADEX [Suspect]
     Active Substance: TORSEMIDE
     Dosage: UNK
     Route: 048
     Dates: start: 2023
  17. AUGMENTIN [Concomitant]
     Active Substance: AMOXICILLIN\CLAVULANATE POTASSIUM
     Indication: Product used for unknown indication
     Dosage: 875-125 MG, BID (1 TABLET)
     Route: 048
     Dates: start: 20230605, end: 20230612
  18. PROVENTIL [Concomitant]
     Active Substance: ALBUTEROL
     Indication: Wheezing
     Dosage: 3 ML, PRN (EVERY SIX HOURS) (2.5 MG/ML) 0.083 %
     Dates: start: 20230227
  19. CALCIUM\VITAMIN D [Concomitant]
     Active Substance: CALCIUM\VITAMIN D
     Indication: Product used for unknown indication
     Dosage: UNK
     Route: 048
  20. VITAMIN D3 [Concomitant]
     Active Substance: CHOLECALCIFEROL
     Indication: Product used for unknown indication
     Dosage: 50 ?G, QD
     Route: 048
     Dates: start: 20200623
  21. GLUCOPHAGE XR [Concomitant]
     Active Substance: METFORMIN HYDROCHLORIDE
     Indication: Product used for unknown indication
     Dosage: 500 MG, QD
     Route: 048
     Dates: start: 20221221
  22. SODIUM CHLORIDE [Concomitant]
     Active Substance: SODIUM CHLORIDE
     Indication: Sputum increased
     Dosage: 4 ML BY NEBULIZATION AS NEEDED
     Dates: start: 20230309
  23. GLUCOTROL XL [Concomitant]
     Active Substance: GLIPIZIDE
     Indication: Product used for unknown indication
     Dosage: 2.5 MG, QD
     Route: 048
     Dates: start: 20230525
  24. COMBIGAN [Concomitant]
     Active Substance: BRIMONIDINE TARTRATE\TIMOLOL MALEATE
     Indication: Product used for unknown indication
     Dosage: 1 DROP IN THE MORNING AND 1 DROP IN THE EVENING (OPHTHALMIC SOLUTION)
     Route: 047
  25. SILDENAFIL CITRATE [Concomitant]
     Active Substance: SILDENAFIL CITRATE
     Indication: Product used for unknown indication
     Dosage: UNK
     Route: 065
  26. PFIZER-BIONTECH COVID-19 VACCINE [Concomitant]
     Active Substance: TOZINAMERAN
     Indication: COVID-19 immunisation
     Dosage: UNK
     Route: 065
  27. HERBALS\TURMERIC [Concomitant]
     Active Substance: HERBALS\TURMERIC
     Indication: Product used for unknown indication
     Dosage: UNK
     Route: 065
  28. VITAMINS [Concomitant]
     Active Substance: VITAMINS
     Indication: Product used for unknown indication
     Dosage: UNK
     Route: 065
  29. TYLENOL EXTRA STRENGTH [Concomitant]
     Active Substance: ACETAMINOPHEN
     Indication: Product used for unknown indication
     Dosage: UNK
     Route: 065
  30. THIAMINE HYDROCHLORIDE [Concomitant]
     Active Substance: THIAMINE HYDROCHLORIDE
     Indication: Product used for unknown indication
     Dosage: UNK
     Route: 065
  31. OXYGEN [Concomitant]
     Active Substance: OXYGEN
     Indication: Product used for unknown indication
     Dosage: UNK
     Route: 065

REACTIONS (38)
  - Pulmonary sarcoidosis [Unknown]
  - Right ventricular failure [Not Recovered/Not Resolved]
  - Lymphadenopathy [Recovered/Resolved]
  - Lymph node pain [Unknown]
  - Ear swelling [Unknown]
  - Respiratory tract congestion [Unknown]
  - Cough [Unknown]
  - Swelling [Not Recovered/Not Resolved]
  - Sputum discoloured [Unknown]
  - Oedema peripheral [Unknown]
  - Oedema [Unknown]
  - Left ventricular end-diastolic pressure decreased [Unknown]
  - Pulmonary arterial wedge pressure decreased [Unknown]
  - Peripheral swelling [Not Recovered/Not Resolved]
  - Fatigue [Unknown]
  - Dyspnoea [Not Recovered/Not Resolved]
  - Angiotensin converting enzyme increased [Unknown]
  - Red blood cell sedimentation rate increased [Unknown]
  - Weight increased [Not Recovered/Not Resolved]
  - Hyperglycaemia [Unknown]
  - Ocular icterus [Unknown]
  - Skin hypopigmentation [Unknown]
  - Myalgia [Unknown]
  - Wheezing [Unknown]
  - Walking distance test abnormal [Unknown]
  - Rales [Unknown]
  - Pulmonary function test abnormal [Unknown]
  - Pain in extremity [Unknown]
  - Diastolic dysfunction [Recovered/Resolved]
  - Left atrial dilatation [Recovered/Resolved]
  - Right atrial dilatation [Recovered/Resolved]
  - Sputum increased [Unknown]
  - Hypotension [Recovered/Resolved]
  - Abdominal distension [Not Recovered/Not Resolved]
  - Fluid retention [Unknown]
  - Dyspnoea exertional [Not Recovered/Not Resolved]
  - Therapy non-responder [Unknown]
  - Therapy interrupted [Recovered/Resolved]

NARRATIVE: CASE EVENT DATE: 20221213
